FAERS Safety Report 9028138 (Version 8)
Quarter: 2014Q4

REPORT INFORMATION
  Report Type: Report from Study
  Country: CA (occurrence: CA)
  Receive Date: 20130123
  Receipt Date: 20141031
  Transmission Date: 20150529
  Serious: Yes (Other)
  Sender: FDA-Public Use
  Company Number: PHHY2010CA07078

PATIENT
  Age: 72 Year
  Sex: Female

DRUGS (4)
  1. SANDOSTATIN LAR DEPOT [Suspect]
     Active Substance: OCTREOTIDE ACETATE
     Indication: OFF LABEL USE
     Dosage: 10 MG, QMO
     Route: 030
  2. SANDOSTATIN LAR DEPOT [Suspect]
     Active Substance: OCTREOTIDE ACETATE
     Dosage: 10 MG, EVERY 4 WEEKS
     Route: 030
  3. SANDOSTATIN LAR DEPOT [Suspect]
     Active Substance: OCTREOTIDE ACETATE
     Indication: IRON DEFICIENCY ANAEMIA
     Dosage: 20 MG, QMO
     Route: 030
     Dates: start: 20100106
  4. SANDOSTATIN LAR DEPOT [Suspect]
     Active Substance: OCTREOTIDE ACETATE
     Dosage: 10 MG, QMO
     Route: 030

REACTIONS (10)
  - Blood pressure systolic increased [Unknown]
  - Blood pressure increased [Unknown]
  - Nausea [Unknown]
  - Blood pressure diastolic decreased [Unknown]
  - Bronchitis [Unknown]
  - Respiratory tract congestion [Not Recovered/Not Resolved]
  - Abdominal pain [Unknown]
  - Cough [Not Recovered/Not Resolved]
  - Dyspnoea exertional [Unknown]
  - Renal failure [Unknown]

NARRATIVE: CASE EVENT DATE: 20130115
